FAERS Safety Report 5332550-8 (Version None)
Quarter: 2007Q2

REPORT INFORMATION
  Report Type: 
  Country: None (occurrence: None)
  Receive Date: 20070523
  Receipt Date: 20070510
  Transmission Date: 20071010
  Serious: Yes (Hospitalization)
  Sender: FDA-Public Use
  Company Number: BR-SHR-BR-2007-017272

PATIENT
  Age: 25 Year
  Sex: Male

DRUGS (1)
  1. BETASERON [Suspect]
     Dosage: 8 MIU, EVERY 2D
     Route: 058
     Dates: start: 20070301

REACTIONS (5)
  - DEAFNESS UNILATERAL [None]
  - DIPLOPIA [None]
  - DIZZINESS [None]
  - HEADACHE [None]
  - VOMITING [None]
